FAERS Safety Report 7636041-0 (Version None)
Quarter: 2011Q3

REPORT INFORMATION
  Report Type: 
  Country: None (occurrence: None)
  Receive Date: 20110719
  Receipt Date: 20110711
  Transmission Date: 20111222
  Serious: Yes (Hospitalization)
  Sender: FDA-Public Use
  Company Number: WAES 1106USA03866

PATIENT
  Age: 64 Year
  Sex: Male

DRUGS (3)
  1. LOSARTAN POTASSIUM [Suspect]
     Indication: ESSENTIAL HYPERTENSION
     Dosage: 50/12.5 MG/DAILY PO
     Route: 048
     Dates: start: 20110525, end: 20110627
  2. PLACEBO [Suspect]
     Dosage: 1 TAB/DAILY PO
     Route: 048
     Dates: start: 20110525, end: 20110627
  3. LIPITOR [Concomitant]

REACTIONS (3)
  - BLOOD PRESSURE INCREASED [None]
  - CEREBRAL HAEMORRHAGE [None]
  - FALL [None]
